FAERS Safety Report 7780863-2 (Version None)
Quarter: 2011Q3

REPORT INFORMATION
  Report Type: 
  Country: None (occurrence: None)
  Receive Date: 20110923
  Receipt Date: 20110915
  Transmission Date: 20111222
  Serious: Yes (Hospitalization, Other)
  Sender: FDA-Public Use
  Company Number: ACO_26672_2011

PATIENT
  Age: 35 Year
  Sex: Female
  Weight: 104.3273 kg

DRUGS (6)
  1. TYLENOL   /00020001/ (PARACETAMOL) [Concomitant]
  2. MECLIZINE   /00072801/ (MECLOZINE) [Concomitant]
  3. METFORMIN HCL [Concomitant]
  4. CORTICOSTEROID NOS (CORTICOSTEROID NOS) [Concomitant]
  5. AMPYRA [Suspect]
     Indication: MULTIPLE SCLEROSIS
     Dosage: 10 MG, BID, ORAL   10 MG, BID, ORAL
     Route: 048
     Dates: start: 20100901, end: 20100101
  6. AMPYRA [Suspect]
     Indication: MULTIPLE SCLEROSIS
     Dosage: 10 MG, BID, ORAL   10 MG, BID, ORAL
     Route: 048
     Dates: start: 20110601, end: 20110701

REACTIONS (5)
  - MATERNAL EXPOSURE DURING PREGNANCY [None]
  - WEIGHT DECREASED [None]
  - PREGNANCY [None]
  - CONVULSION [None]
  - MULTIPLE SCLEROSIS RELAPSE [None]
